FAERS Safety Report 19788266 (Version 2)
Quarter: 2021Q4

REPORT INFORMATION
  Report Type: Spontaneous
  Country: RU (occurrence: RU)
  Receive Date: 20210903
  Receipt Date: 20211013
  Transmission Date: 20220303
  Serious: Yes (Other)
  Sender: FDA-Public Use
  Company Number: 2021A704428

PATIENT
  Age: 42 Year
  Sex: Female
  Weight: 78 kg

DRUGS (2)
  1. SYMBICORT [Suspect]
     Active Substance: BUDESONIDE\FORMOTEROL FUMARATE DIHYDRATE
     Indication: Asthma
     Dosage: 160/4,5 MCG, 120 DOSES, 1-2 TIMES A DAY
     Route: 055
  2. PREDNISOLONE [Concomitant]
     Active Substance: PREDNISOLONE
     Dosage: UNKNOWN
     Route: 065

REACTIONS (3)
  - Status asthmaticus [Recovered/Resolved]
  - Device malfunction [Unknown]
  - Device physical property issue [Unknown]
